FAERS Safety Report 7296337-1 (Version None)
Quarter: 2011Q1

REPORT INFORMATION
  Report Type: 
  Country: None (occurrence: None)
  Receive Date: 20110216
  Receipt Date: 20110209
  Transmission Date: 20110831
  Serious: Yes (Other)
  Sender: FDA-Public Use
  Company Number: US-JNJFOC-20110203358

PATIENT
  Sex: Female
  Weight: 88.45 kg

DRUGS (4)
  1. HIGH BLOOD PRESSURE MEDICATION NOS [Concomitant]
     Indication: HYPERTENSION
     Route: 065
  2. HIGH CHOLESTEROL MEDICATION, NOS [Concomitant]
     Indication: BLOOD CHOLESTEROL INCREASED
     Route: 065
  3. ARAVA [Concomitant]
     Indication: RHEUMATOID ARTHRITIS
     Route: 048
  4. REMICADE [Suspect]
     Indication: RHEUMATOID ARTHRITIS
     Dosage: 6 VIALS
     Route: 042

REACTIONS (1)
  - SKIN ULCER [None]
